FAERS Safety Report 9344617 (Version 1)
Quarter: 2013Q2

REPORT INFORMATION
  Report Type: Spontaneous
  Country: US (occurrence: None)
  Receive Date: 20130611
  Receipt Date: 20130611
  Transmission Date: 20140414
  Serious: No
  Sender: FDA-Public Use
  Company Number: None

PATIENT
  Age: 43 Year
  Sex: Male
  Weight: 86 kg

DRUGS (1)
  1. NOVOSEVEN [Suspect]
     Route: 040
     Dates: start: 20130610, end: 20130610

REACTIONS (2)
  - Device malfunction [None]
  - Syringe issue [None]
